FAERS Safety Report 5900305-9 (Version None)
Quarter: 2008Q3

REPORT INFORMATION
  Report Type: 
  Country: None (occurrence: None)
  Receive Date: 20080926
  Receipt Date: 20080922
  Transmission Date: 20090109
  Serious: Yes (Hospitalization)
  Sender: FDA-Public Use
  Company Number: PHEH2008US07459

PATIENT
  Sex: Male

DRUGS (5)
  1. ZOMETA [Suspect]
     Indication: OSTEOPOROSIS
     Dosage: 4 MG, EVERY 3 MONTHS
     Dates: start: 20060626
  2. ZOMETA [Suspect]
     Indication: PROSTATE CANCER METASTATIC
  3. CASODEX [Concomitant]
     Indication: PROSTATE CANCER
     Dosage: 50 MG, QD
     Dates: start: 20080814
  4. MEVACOR [Concomitant]
     Indication: LIPID METABOLISM DISORDER
     Dosage: UNK
     Dates: start: 20000101
  5. ASPIRIN [Concomitant]
     Indication: CARDIOVASCULAR DISORDER
     Dosage: 325 MG, QD
     Dates: start: 20000101

REACTIONS (3)
  - CHILLS [None]
  - PNEUMONIA [None]
  - PYREXIA [None]
